FAERS Safety Report 24200928 (Version 1)
Quarter: 2024Q3

REPORT INFORMATION
  Report Type: Spontaneous
  Country: FR (occurrence: FR)
  Receive Date: 20240812
  Receipt Date: 20240812
  Transmission Date: 20241016
  Serious: Yes (Other)
  Sender: PFIZER
  Company Number: FR-PFM-2024-02927

PATIENT
  Age: 56 Year
  Sex: Male

DRUGS (5)
  1. BRAFTOVI [Suspect]
     Active Substance: ENCORAFENIB
     Indication: Metastatic malignant melanoma
     Dosage: 450 MG DAILY IN THE MORNING
     Route: 048
     Dates: start: 20240412, end: 20240511
  2. BRAFTOVI [Suspect]
     Active Substance: ENCORAFENIB
     Dosage: 300 MG DAILY IN THE MORNING
     Route: 048
     Dates: start: 20240519
  3. MEKTOVI [Suspect]
     Active Substance: BINIMETINIB
     Indication: Metastatic malignant melanoma
     Dosage: 45 MG, BID (2/DAY) MORNING AND EVENING
     Route: 048
     Dates: start: 20240412, end: 20240511
  4. MEKTOVI [Suspect]
     Active Substance: BINIMETINIB
     Dosage: 30 MG, BID (2/DAY) MORNING AND EVENING
     Route: 048
     Dates: start: 20240519
  5. PREDNISOLONE [Concomitant]
     Active Substance: PREDNISOLONE
     Dosage: 3 DF DAILY
     Route: 065
     Dates: start: 20240119

REACTIONS (2)
  - Pancreatitis [Recovered/Resolved]
  - Dyspepsia [Recovered/Resolved]

NARRATIVE: CASE EVENT DATE: 20240510
